FAERS Safety Report 4569760-3 (Version None)
Quarter: 2005Q1

REPORT INFORMATION
  Report Type: 
  Country: None (occurrence: None)
  Receive Date: 20050203
  Receipt Date: 20041105
  Transmission Date: 20050727
  Serious: Yes (Hospitalization, Disabling)
  Sender: FDA-Public Use
  Company Number: FR-MERCK-0411FRA00028

PATIENT
  Age: 58 Year
  Sex: Female
  Weight: 47 kg

DRUGS (9)
  1. SINGULAIR [Suspect]
     Indication: ASTHMA
     Route: 048
     Dates: start: 19990601, end: 20001201
  2. SINGULAIR [Suspect]
     Route: 048
     Dates: start: 20040101, end: 20040616
  3. CORTICOSTEROIDS (UNSPECIFIED) [Concomitant]
     Indication: ASTHMA
     Route: 065
     Dates: end: 20040201
  4. NAPROXEN SODIUM [Concomitant]
     Indication: PAIN IN EXTREMITY
     Route: 048
     Dates: start: 20040501, end: 20040501
  5. SALMETEROL XINAFOATE [Concomitant]
     Indication: ASTHMA
     Route: 055
  6. ALBUTEROL SULFATE [Concomitant]
     Indication: ASTHMA
     Route: 055
  7. FLUTICASONE PROPIONATE [Concomitant]
     Indication: ASTHMA
     Route: 055
  8. DESLORATADINE [Concomitant]
     Indication: ALLERGIC RESPIRATORY DISEASE
     Route: 048
  9. DESLORATADINE [Concomitant]
     Indication: DERMATITIS ALLERGIC
     Route: 048

REACTIONS (3)
  - ALLERGIC GRANULOMATOUS ANGIITIS [None]
  - DRUG INEFFECTIVE [None]
  - URINARY TRACT INFECTION [None]
